FAERS Safety Report 14552566 (Version 2)
Quarter: 2018Q3

REPORT INFORMATION
  Report Type: Spontaneous
  Country: US (occurrence: US)
  Receive Date: 20180220
  Receipt Date: 20180808
  Transmission Date: 20181010
  Serious: No
  Sender: FDA-Public Use
  Company Number: US-ASTRAZENECA-2018SE10118

PATIENT
  Age: 65 Year
  Sex: Female
  Weight: 86.2 kg

DRUGS (1)
  1. FARXIGA [Suspect]
     Active Substance: DAPAGLIFLOZIN PROPANEDIOL
     Indication: TYPE 2 DIABETES MELLITUS
     Route: 048
     Dates: start: 2016

REACTIONS (7)
  - Urinary incontinence [Recovered/Resolved]
  - Bladder pain [Recovered/Resolved]
  - Bladder disorder [Recovered/Resolved]
  - Toothache [Unknown]
  - Renal disorder [Recovered/Resolved]
  - Renal pain [Recovered/Resolved]
  - Intentional product misuse [Unknown]

NARRATIVE: CASE EVENT DATE: 2016
